FAERS Safety Report 14979757 (Version 1)
Quarter: 2018Q2

REPORT INFORMATION
  Report Type: Spontaneous
  Country: FR (occurrence: FR)
  Receive Date: 20180606
  Receipt Date: 20180606
  Transmission Date: 20180711
  Serious: Yes (Other)
  Sender: FDA-Public Use
  Company Number: FR-ROCHE-2135414

PATIENT
  Age: 66 Year
  Sex: Female

DRUGS (10)
  1. CLOPIXOL [Suspect]
     Active Substance: ZUCLOPENTHIXOL
     Indication: DEPRESSION
     Dosage: INCONNUE
     Route: 048
     Dates: end: 20180105
  2. VALIUM [Suspect]
     Active Substance: DIAZEPAM
     Indication: DEPRESSION
     Route: 048
  3. DIPIPERON [Concomitant]
     Active Substance: PIPAMPERONE
     Dosage: UNIT DOSE: 30 [DRP] ?STRENGTH 40 MG/ML
     Route: 048
     Dates: start: 20171213
  4. IMOVANE [Concomitant]
     Active Substance: ZOPICLONE
     Route: 048
     Dates: start: 20171213
  5. ABILIFY [Suspect]
     Active Substance: ARIPIPRAZOLE
     Indication: DEPRESSION
     Route: 048
     Dates: end: 20180117
  6. CLOZAPINE. [Suspect]
     Active Substance: CLOZAPINE
     Indication: DEPRESSION
     Dosage: INCONNUE
     Route: 048
  7. TRANSIPEG (FRANCE) [Concomitant]
     Route: 048
     Dates: start: 20171211
  8. DOLIPRANE ORODOZ [Concomitant]
     Route: 048
     Dates: start: 20171028
  9. RIVOTRIL [Concomitant]
     Active Substance: CLONAZEPAM
     Dosage: UNIT DOSE: 20 [DRP] ?STRENGTH 2.5 MG/ML
     Route: 048
     Dates: start: 20171206
  10. LANSOYL [Concomitant]
     Active Substance: MINERAL OIL
     Route: 048
     Dates: start: 20171120

REACTIONS (2)
  - Anaemia [Unknown]
  - Neutropenia [Unknown]

NARRATIVE: CASE EVENT DATE: 20171019
